FAERS Safety Report 5155863-1 (Version None)
Quarter: 2006Q4

REPORT INFORMATION
  Report Type: 
  Country: None (occurrence: None)
  Receive Date: 20061122
  Receipt Date: 20061114
  Transmission Date: 20070319
  Serious: Yes (Hospitalization, Other)
  Sender: FDA-Public Use
  Company Number: US-JNJFOC-20060904634

PATIENT
  Sex: Female
  Weight: 79.38 kg

DRUGS (18)
  1. REMICADE [Suspect]
     Dosage: 10 VIALS
     Route: 042
  2. REMICADE [Suspect]
     Dosage: 5 VIALS
     Route: 042
  3. REMICADE [Suspect]
     Dosage: 5 VIALS
     Route: 042
  4. REMICADE [Suspect]
     Dosage: 5 VIALS
     Route: 042
  5. REMICADE [Suspect]
     Indication: PSORIATIC ARTHROPATHY
     Dosage: 5 VIALS
     Route: 042
  6. PRILOSEC [Concomitant]
  7. OXYCODONE HCL [Concomitant]
     Dosage: 10 MG EVERY 4 TO 6 HOURS
  8. FENTANYL [Concomitant]
  9. ALLEGRA [Concomitant]
  10. ZANAFLEX [Concomitant]
  11. XANAX [Concomitant]
  12. COMBIVENT [Concomitant]
     Dosage: 2 PUFFS EVERY 6 HOURS AS NEEDED
  13. MULTIPLE INHALERS [Concomitant]
  14. AMBIEN [Concomitant]
  15. CYMBALTA [Concomitant]
  16. XOPENEX [Concomitant]
     Indication: DYSPNOEA
  17. XOPENEX [Concomitant]
     Indication: WHEEZING
  18. MAXAIR [Concomitant]
     Dosage: 2 PUFFS 3 TIMES A DAY

REACTIONS (7)
  - ADRENAL INSUFFICIENCY [None]
  - ASTHENIA [None]
  - BLOOD POTASSIUM DECREASED [None]
  - DIABETES INSIPIDUS [None]
  - GASTROINTESTINAL HAEMORRHAGE [None]
  - HYPOTENSION [None]
  - RECTAL HAEMORRHAGE [None]
